FAERS Safety Report 25431479 (Version 3)
Quarter: 2025Q3

REPORT INFORMATION
  Report Type: Spontaneous
  Country: EU (occurrence: EU)
  Receive Date: 20250613
  Receipt Date: 20250701
  Transmission Date: 20251021
  Serious: Yes (Other)
  Sender: ASCEND THERAPEUTICS US, LLC
  Company Number: EU-Ascend Therapeutics US, LLC-2178425

PATIENT
  Age: 47 Year
  Sex: Female

DRUGS (3)
  1. ESTROGEL [Suspect]
     Active Substance: ESTRADIOL
     Indication: Hormone level abnormal
     Dates: start: 20250210, end: 20250426
  2. ESTRADIOL HEMIHYDRATE [Suspect]
     Active Substance: ESTRADIOL HEMIHYDRATE
     Dates: start: 20250331, end: 20250426
  3. MIRENA [Concomitant]
     Active Substance: LEVONORGESTREL
     Dates: start: 20250210

REACTIONS (8)
  - Retinal artery occlusion [Recovered/Resolved]
  - Insomnia [Unknown]
  - Erythema [Unknown]
  - Asthenia [Recovered/Resolved]
  - General physical health deterioration [Recovered/Resolved]
  - Headache [Unknown]
  - Retinal vein occlusion [Unknown]
  - Visual impairment [Unknown]

NARRATIVE: CASE EVENT DATE: 20250101
